FAERS Safety Report 7286049-2 (Version None)
Quarter: 2011Q1

REPORT INFORMATION
  Report Type: 
  Country: None (occurrence: None)
  Receive Date: 20110210
  Receipt Date: 20110207
  Transmission Date: 20110831
  Serious: Yes (Life-Threatening, Other)
  Sender: FDA-Public Use
  Company Number: SG-ROXANE LABORATORIES, INC.-2011-RO-00153RO

PATIENT
  Sex: Female

DRUGS (4)
  1. ALPRAZOLAM INTENSOL [ORAL SOLUTION (CONCENTRATE)] 1 MG/ML [Suspect]
     Indication: OBSESSIVE-COMPULSIVE DISORDER
  2. ALPRAZOLAM INTENSOL [ORAL SOLUTION (CONCENTRATE)] 1 MG/ML [Suspect]
     Indication: PANIC ATTACK
  3. FLUOXETINE [Suspect]
     Indication: PANIC ATTACK
  4. FLUOXETINE [Suspect]
     Indication: OBSESSIVE-COMPULSIVE DISORDER
     Dosage: 20 MG

REACTIONS (2)
  - SOMNOLENCE [None]
  - SUICIDAL IDEATION [None]
